FAERS Safety Report 7418107-3 (Version None)
Quarter: 2011Q2

REPORT INFORMATION
  Report Type: 
  Country: None (occurrence: None)
  Receive Date: 20110412
  Receipt Date: 20110412
  Transmission Date: 20111010
  Serious: Yes (Other)
  Sender: FDA-Public Use
  Company Number: None

PATIENT
  Age: 18 Year
  Sex: Male
  Weight: 68.0396 kg

DRUGS (1)
  1. LEVAQUIN [Suspect]
     Indication: PHARYNGITIS STREPTOCOCCAL
     Dosage: 500 MG DAILY PO
     Route: 048
     Dates: start: 20110307, end: 20110310

REACTIONS (7)
  - DISORIENTATION [None]
  - APATHY [None]
  - EDUCATIONAL PROBLEM [None]
  - DEPRESSION [None]
  - CONFUSIONAL STATE [None]
  - PAIN IN EXTREMITY [None]
  - DECREASED APPETITE [None]
